FAERS Safety Report 9211187 (Version 1)
Quarter: 2013Q2

REPORT INFORMATION
  Report Type: Spontaneous
  Country: US (occurrence: US)
  Receive Date: 20130404
  Receipt Date: 20130404
  Transmission Date: 20140414
  Serious: No
  Sender: FDA-Public Use
  Company Number: US-AMGEN-USASP2013015230

PATIENT
  Age: 79 Year
  Sex: Female
  Weight: 58.5 kg

DRUGS (6)
  1. ENBREL [Suspect]
     Indication: RHEUMATOID ARTHRITIS
     Dosage: UNK
  2. REMICADE [Concomitant]
     Indication: RHEUMATOID ARTHRITIS
     Dosage: UNK
  3. HUMIRA [Concomitant]
     Indication: RHEUMATOID ARTHRITIS
     Dosage: UNK
  4. CELEBREX [Concomitant]
     Indication: RHEUMATOID ARTHRITIS
     Dosage: UNK
  5. PREDNISOLONE [Concomitant]
     Indication: RHEUMATOID ARTHRITIS
     Dosage: UNK
  6. NSAID^S [Concomitant]
     Indication: RHEUMATOID ARTHRITIS
     Dosage: UNK

REACTIONS (2)
  - Abdominal discomfort [Unknown]
  - Drug ineffective [Unknown]
